FAERS Safety Report 5107281-X (Version None)
Quarter: 2006Q3

REPORT INFORMATION
  Report Type: 
  Country: None (occurrence: None)
  Receive Date: 20060913
  Receipt Date: 20060830
  Transmission Date: 20061208
  Serious: Yes (Death)
  Sender: FDA-Public Use
  Company Number: 2006EU002466

PATIENT
  Age: 52 Year
  Sex: Female

DRUGS (3)
  1. PROGRAF [Suspect]
     Indication: RENAL AND PANCREAS TRANSPLANT
  2. MYCOPHENOLATE MOFETIL [Suspect]
     Indication: RENAL AND PANCREAS TRANSPLANT
  3. PREDNISOLONE ACETATE [Suspect]
     Indication: RENAL AND PANCREAS TRANSPLANT
     Dosage: 20 MG

REACTIONS (15)
  - CEREBRAL HAEMATOMA [None]
  - CEREBRAL INFARCTION [None]
  - DEEP VEIN THROMBOSIS [None]
  - GANGRENE [None]
  - HAEMORRHAGE INTRACRANIAL [None]
  - HERNIA [None]
  - INFECTION [None]
  - LIVER DISORDER [None]
  - LYMPHOPROLIFERATIVE DISORDER [None]
  - NERVOUS SYSTEM DISORDER [None]
  - PULMONARY EMBOLISM [None]
  - RENAL DISORDER [None]
  - STAPHYLOCOCCAL INFECTION [None]
  - TONSILLAR DISORDER [None]
  - TRANSPLANT REJECTION [None]
